FAERS Safety Report 21310929 (Version 1)
Quarter: 2022Q3

REPORT INFORMATION
  Report Type: Spontaneous
  Country: US (occurrence: None)
  Receive Date: 20220908
  Receipt Date: 20220908
  Transmission Date: 20221027
  Serious: No
  Sender: FDA-Public Use
  Company Number: None

PATIENT
  Age: 89 Year
  Sex: Female

DRUGS (1)
  1. REVLIMID [Suspect]
     Active Substance: LENALIDOMIDE
     Indication: Plasma cell myeloma
     Dosage: FREQUENCY : DAILY;?
     Route: 048
     Dates: start: 20220809, end: 20220815

REACTIONS (8)
  - Nausea [None]
  - Vomiting [None]
  - Dehydration [None]
  - Dry mouth [None]
  - Cough [None]
  - Pancytopenia [None]
  - Hyponatraemia [None]
  - Hypovolaemia [None]

NARRATIVE: CASE EVENT DATE: 20220815
